FAERS Safety Report 11269679 (Version 2)
Quarter: 2015Q3

REPORT INFORMATION
  Report Type: Spontaneous
  Country: US (occurrence: US)
  Receive Date: 20150714
  Receipt Date: 20150814
  Transmission Date: 20151125
  Serious: Yes (Disabling, Other)
  Sender: FDA-Public Use
  Company Number: US-SUN PHARMACEUTICAL INDUSTRIES LTD-2015US-099986

PATIENT
  Age: 64 Year
  Sex: Female
  Weight: 165 kg

DRUGS (2)
  1. DILANTIN [Concomitant]
     Active Substance: PHENYTOIN
     Indication: EPILEPSY
     Dosage: UNK
     Route: 065
  2. OXCARBAZEPINE. [Suspect]
     Active Substance: OXCARBAZEPINE
     Indication: SEIZURE
     Dosage: 450 MG, BID
     Route: 065

REACTIONS (4)
  - Confusional state [Not Recovered/Not Resolved]
  - Fall [Unknown]
  - Accident [Unknown]
  - Syncope [Unknown]

NARRATIVE: CASE EVENT DATE: 2015
